FAERS Safety Report 21237438 (Version 10)
Quarter: 2023Q4

REPORT INFORMATION
  Report Type: Spontaneous
  Country: US (occurrence: US)
  Receive Date: 20220822
  Receipt Date: 20231215
  Transmission Date: 20240109
  Serious: Yes (Other)
  Sender: FDA-Public Use
  Company Number: US-PFIZER INC-PV202200046202

PATIENT
  Age: 76 Year
  Sex: Female
  Weight: 53.515 kg

DRUGS (2)
  1. IBRANCE [Suspect]
     Active Substance: PALBOCICLIB
     Indication: Neoplasm malignant
     Dosage: 125 MG
  2. IBRANCE [Suspect]
     Active Substance: PALBOCICLIB
     Dosage: 75 MG, 1X/DAY
     Dates: start: 20230524

REACTIONS (9)
  - Second primary malignancy [Not Recovered/Not Resolved]
  - Skin cancer [Not Recovered/Not Resolved]
  - Solar lentigo [Not Recovered/Not Resolved]
  - Deafness [Unknown]
  - Hypoacusis [Unknown]
  - Nail disorder [Unknown]
  - Onychoclasis [Unknown]
  - Oral pain [Unknown]
  - Product prescribing error [Unknown]
